FAERS Safety Report 5770855-7 (Version None)
Quarter: 2008Q2

REPORT INFORMATION
  Report Type: 
  Country: None (occurrence: None)
  Receive Date: 20080613
  Receipt Date: 20080516
  Transmission Date: 20081010
  Serious: No
  Sender: FDA-Public Use
  Company Number: US-ABBOTT-08P-163-0452321-00

PATIENT
  Age: 47 Year
  Sex: Female

DRUGS (4)
  1. HUMIRA [Suspect]
     Indication: PSORIASIS
     Route: 058
     Dates: start: 20060101
  2. HUMIRA [Suspect]
     Route: 058
     Dates: end: 20080301
  3. TACLONEX [Concomitant]
     Indication: PSORIASIS
     Dosage: ONCE IN THE PM
     Route: 061
  4. CALCIPOTRIENE [Concomitant]
     Indication: PSORIASIS
     Dosage: ONCE IN THE AM
     Route: 061

REACTIONS (3)
  - ANTINUCLEAR ANTIBODY POSITIVE [None]
  - PSORIASIS [None]
  - TUBERCULIN TEST POSITIVE [None]
